FAERS Safety Report 20107638 (Version 2)
Quarter: 2021Q4

REPORT INFORMATION
  Report Type: Report from Study
  Country: MX (occurrence: MX)
  Receive Date: 20211124
  Receipt Date: 20211231
  Transmission Date: 20220303
  Serious: Yes (Other)
  Sender: FDA-Public Use
  Company Number: MX-NOVARTISPH-NVSC2021MX268385

PATIENT
  Sex: Female
  Weight: 68 kg

DRUGS (1)
  1. FEMARA [Suspect]
     Active Substance: LETROZOLE
     Indication: Breast cancer
     Dosage: 1 DF, QD (2.5 MG)
     Route: 048
     Dates: start: 201801

REACTIONS (3)
  - Blindness [Not Recovered/Not Resolved]
  - Osteopenia [Unknown]
  - Vein disorder [Not Recovered/Not Resolved]

NARRATIVE: CASE EVENT DATE: 20180101
